FAERS Safety Report 7945325-8 (Version None)
Quarter: 2011Q4

REPORT INFORMATION
  Report Type: 
  Country: None (occurrence: None)
  Receive Date: 20111129
  Receipt Date: 20110225
  Transmission Date: 20120403
  Serious: Yes (Hospitalization)
  Sender: FDA-Public Use
  Company Number: US-GLAXOSMITHKLINE-A0915389A

PATIENT
  Age: 44 Year
  Sex: Male

DRUGS (6)
  1. WELLBUTRIN SR [Suspect]
     Indication: DEPRESSION
     Dosage: 100MG PER DAY
     Route: 048
     Dates: start: 20110201, end: 20110216
  2. TRAZODONE HCL [Concomitant]
  3. VITAMIN B COMPLEX CAP [Concomitant]
  4. VITAMIN E [Concomitant]
  5. HYDROXYZINE [Concomitant]
  6. MULTI-VITAMIN [Concomitant]

REACTIONS (1)
  - CONVULSION [None]
